FAERS Safety Report 12201207 (Version 1)
Quarter: 2016Q1

REPORT INFORMATION
  Report Type: Spontaneous
  Country: US (occurrence: US)
  Receive Date: 20160322
  Receipt Date: 20160322
  Transmission Date: 20160526
  Serious: No
  Sender: FDA-Public Use
  Company Number: US-SA-2015SA062163

PATIENT
  Age: 68 Year
  Sex: Male

DRUGS (6)
  1. NASACORT ALLERGY 24HR [Suspect]
     Active Substance: TRIAMCINOLONE ACETONIDE
     Indication: NASAL CONGESTION
     Dosage: DAILY DOSE: ONE SPRAY IN EACH NOSTRIL?TAKEN FROM: 4 MONTHS AGO
     Route: 045
  2. ZYRTEC [Suspect]
     Active Substance: CETIRIZINE HYDROCHLORIDE
     Indication: MULTIPLE ALLERGIES
     Route: 065
  3. NASACORT ALLERGY 24HR [Suspect]
     Active Substance: TRIAMCINOLONE ACETONIDE
     Indication: MULTIPLE ALLERGIES
     Dosage: DAILY DOSE: ONE SPRAY IN EACH NOSTRIL?TAKEN FROM: 4 MONTHS AGO
     Route: 045
  4. ZYRTEC [Suspect]
     Active Substance: CETIRIZINE HYDROCHLORIDE
     Indication: NASAL CONGESTION
     Route: 065
  5. NASACORT ALLERGY 24HR [Suspect]
     Active Substance: TRIAMCINOLONE ACETONIDE
     Indication: NASAL CONGESTION
     Dosage: DAILY DOSE: TWO SPRAY IN EACH NOSTRIL?TAKEN FROM: 4 MONTHS AGO
     Route: 045
  6. NASACORT ALLERGY 24HR [Suspect]
     Active Substance: TRIAMCINOLONE ACETONIDE
     Indication: MULTIPLE ALLERGIES
     Dosage: DAILY DOSE: TWO SPRAY IN EACH NOSTRIL?TAKEN FROM: 4 MONTHS AGO
     Route: 045

REACTIONS (1)
  - Drug effect incomplete [Unknown]
